FAERS Safety Report 9225796 (Version 1)
Quarter: 2013Q2

REPORT INFORMATION
  Report Type: Spontaneous
  Country: US (occurrence: None)
  Receive Date: 20130410
  Receipt Date: 20130410
  Transmission Date: 20140414
  Serious: Yes (Hospitalization)
  Sender: FDA-Public Use
  Company Number: None

PATIENT
  Age: 62 Year
  Sex: Male
  Weight: 86.3 kg

DRUGS (7)
  1. XARELTO [Suspect]
     Indication: ATRIAL FIBRILLATION
     Dosage: 15 MG DAILY PO
  2. XARELTO [Suspect]
     Indication: THROMBOSIS PROPHYLAXIS
     Dosage: 15 MG DAILY PO
  3. NORVASC [Concomitant]
     Indication: THROMBOSIS PROPHYLAXIS
     Dosage: 81 MG DAILY PO
  4. COREG [Concomitant]
  5. ERGOCALCIFEROL [Concomitant]
  6. MAG OX [Concomitant]
  7. VALSARTAN [Concomitant]

REACTIONS (4)
  - Haematochezia [None]
  - Large intestinal haemorrhage [None]
  - Haemorrhagic anaemia [None]
  - Diverticulum intestinal haemorrhagic [None]
